FAERS Safety Report 6429273-0 (Version None)
Quarter: 2009Q4

REPORT INFORMATION
  Report Type: 
  Country: None (occurrence: None)
  Receive Date: 20091105
  Receipt Date: 20091029
  Transmission Date: 20100525
  Serious: Yes (Hospitalization)
  Sender: FDA-Public Use
  Company Number: PHHY2009ZA47092

PATIENT
  Age: 60 Year
  Sex: Female

DRUGS (4)
  1. FEMARA [Suspect]
     Indication: HORMONE REPLACEMENT THERAPY
     Dosage: 2.5 MG, UNK
     Route: 048
  2. DANAZOL [Concomitant]
     Indication: HORMONE REPLACEMENT THERAPY
  3. GLUCOPHAGE [Concomitant]
     Indication: TYPE 2 DIABETES MELLITUS
     Dosage: 500 MG, UNK
  4. VALSARTAN AND HYDROCHLOROTHIAZIDE [Concomitant]
     Dosage: 80 MG, UNK

REACTIONS (2)
  - ARTHROPATHY [None]
  - KNEE OPERATION [None]
